FAERS Safety Report 14802451 (Version 2)
Quarter: 2018Q2

REPORT INFORMATION
  Report Type: Other
  Country: GB (occurrence: US)
  Receive Date: 20180424
  Receipt Date: 20180510
  Transmission Date: 20180711
  Serious: Yes (Hospitalization, Other)
  Sender: FDA-Public Use
  Company Number: US-RARE DISEASE THERAPEUTICS, INC.-2046403

PATIENT
  Age: 33 Year
  Sex: Male

DRUGS (3)
  1. PURIXAN [Suspect]
     Active Substance: MERCAPTOPURINE
     Indication: COLITIS ULCERATIVE
  2. PREDNISOLONE. [Suspect]
     Active Substance: PREDNISOLONE
     Route: 048
  3. MESALAZINE [Suspect]
     Active Substance: MESALAMINE

REACTIONS (4)
  - Hepatitis [None]
  - Off label use [None]
  - Bone marrow failure [None]
  - Cytomegalovirus infection [Recovered/Resolved]
